FAERS Safety Report 11549594 (Version 1)
Quarter: 2015Q3

REPORT INFORMATION
  Report Type: Spontaneous
  Country: US (occurrence: US)
  Receive Date: 20150924
  Receipt Date: 20150924
  Transmission Date: 20151125
  Serious: No
  Sender: FDA-Public Use
  Company Number: US-SHIRE-US201511941

PATIENT
  Sex: Female
  Weight: 50.34 kg

DRUGS (4)
  1. ADDERALL XR [Suspect]
     Active Substance: AMPHETAMINE ASPARTATE\AMPHETAMINE SULFATE\DEXTROAMPHETAMINE SACCHARATE\DEXTROAMPHETAMINE SULFATE
     Indication: ATTENTION DEFICIT/HYPERACTIVITY DISORDER
     Dosage: 30 MG, 2X/DAY:BID
     Route: 048
     Dates: start: 200602, end: 200612
  2. VICODIN [Concomitant]
     Active Substance: ACETAMINOPHEN\HYDROCODONE BITARTRATE
     Indication: BACK DISORDER
  3. VICODIN [Concomitant]
     Active Substance: ACETAMINOPHEN\HYDROCODONE BITARTRATE
     Indication: TENDONITIS
     Dosage: UNK, UNKNOWN
     Route: 065
     Dates: start: 2005
  4. ADDERALL XR [Suspect]
     Active Substance: AMPHETAMINE ASPARTATE\AMPHETAMINE SULFATE\DEXTROAMPHETAMINE SACCHARATE\DEXTROAMPHETAMINE SULFATE
     Dosage: 90 MG (THREE 30 MG CAPSULES), UNKNOWN
     Route: 048
     Dates: start: 2006, end: 2006

REACTIONS (5)
  - Thinking abnormal [Unknown]
  - Prescribed overdose [Recovered/Resolved]
  - Inappropriate schedule of drug administration [Recovered/Resolved]
  - Overdose [Recovered/Resolved]
  - Dyskinesia [Unknown]

NARRATIVE: CASE EVENT DATE: 2006
